FAERS Safety Report 5593524-5 (Version None)
Quarter: 2007Q4

REPORT INFORMATION
  Report Type: 
  Country: None (occurrence: None)
  Receive Date: 20071218
  Receipt Date: 20070312
  Transmission Date: 20080405
  Serious: Yes (Hospitalization, Other)
  Sender: FDA-Public Use
  Company Number: 2006149293

PATIENT
  Age: 41 Year
  Sex: Female

DRUGS (7)
  1. BEXTRA [Suspect]
     Indication: PAIN
     Dosage: 10 MG (10 MG,1 IN 1 D)
     Dates: start: 20050301
  2. VIOXX [Concomitant]
  3. CELEBREX [Concomitant]
  4. CODEINE SUL TAB [Concomitant]
  5. DEMEROL [Concomitant]
  6. MOBIC [Concomitant]
  7. ACETAMINOPHEN [Concomitant]

REACTIONS (1)
  - PULMONARY EMBOLISM [None]
